FAERS Safety Report 21919580 (Version 1)
Quarter: 2023Q1

REPORT INFORMATION
  Report Type: Spontaneous
  Country: US (occurrence: US)
  Receive Date: 20230127
  Receipt Date: 20230127
  Transmission Date: 20230417
  Serious: No
  Sender: FDA-Public Use
  Company Number: US-009507513-2301USA008705

PATIENT
  Age: 57 Year
  Sex: Female

DRUGS (1)
  1. KEYTRUDA [Suspect]
     Active Substance: PEMBROLIZUMAB
     Indication: Lung adenocarcinoma
     Dosage: UNK

REACTIONS (5)
  - Pyrexia [Unknown]
  - Immune-mediated dermatitis [Unknown]
  - Lethargy [Unknown]
  - Magnetic resonance imaging head abnormal [Unknown]
  - Pleocytosis [Unknown]
